FAERS Safety Report 7680690-0 (Version None)
Quarter: 2011Q3

REPORT INFORMATION
  Report Type: 
  Country: None (occurrence: None)
  Receive Date: 20110812
  Receipt Date: 20110801
  Transmission Date: 20111222
  Serious: Yes (Hospitalization)
  Sender: FDA-Public Use
  Company Number: US-JNJFOC-20090809230

PATIENT
  Sex: Male
  Weight: 92 kg

DRUGS (3)
  1. INFLIXIMAB [Suspect]
     Route: 042
     Dates: start: 20080828
  2. INFLIXIMAB [Suspect]
     Route: 042
     Dates: start: 20060831
  3. INFLIXIMAB [Suspect]
     Indication: COLITIS ULCERATIVE
     Dosage: TOTAL DOSES 18
     Route: 042
     Dates: start: 20080912

REACTIONS (1)
  - COLITIS ULCERATIVE [None]
